FAERS Safety Report 12702249 (Version 1)
Quarter: 2016Q3

REPORT INFORMATION
  Report Type: Spontaneous
  Country: TR (occurrence: TR)
  Receive Date: 20160831
  Receipt Date: 20160831
  Transmission Date: 20161109
  Serious: Yes (Hospitalization)
  Sender: FDA-Public Use
  Company Number: TR-TEVA-688115ISR

PATIENT
  Age: 16 Year
  Sex: Male

DRUGS (5)
  1. LORAZEPAM. [Concomitant]
     Active Substance: LORAZEPAM
  2. RISPERIDONE. [Suspect]
     Active Substance: RISPERIDONE
  3. SERTRALINE [Suspect]
     Active Substance: SERTRALINE HYDROCHLORIDE
  4. ARIPIPRAZOLE. [Suspect]
     Active Substance: ARIPIPRAZOLE
     Dosage: 1.25 MILLIGRAM DAILY;
  5. LORAZEPAM. [Concomitant]
     Active Substance: LORAZEPAM

REACTIONS (5)
  - Hypokinesia [Unknown]
  - Off label use [Unknown]
  - Drug ineffective [Unknown]
  - Eating disorder [Unknown]
  - Catatonia [Recovering/Resolving]
